FAERS Safety Report 8153016-6 (Version None)
Quarter: 2012Q1

REPORT INFORMATION
  Report Type: 
  Country: None (occurrence: None)
  Receive Date: 20120221
  Receipt Date: 20120216
  Transmission Date: 20120608
  Serious: Yes (Death)
  Sender: FDA-Public Use
  Company Number: JP-SANOFI-AVENTIS-2012SA005868

PATIENT
  Age: 77 Year
  Sex: Male

DRUGS (2)
  1. DOCETAXEL [Suspect]
     Route: 065
  2. DOCETAXEL [Suspect]
     Dosage: DOSE REDUCED
     Route: 065

REACTIONS (1)
  - ILEUS PARALYTIC [None]
